FAERS Safety Report 6746239-1 (Version None)
Quarter: 2010Q2

REPORT INFORMATION
  Report Type: 
  Country: None (occurrence: None)
  Receive Date: 20100528
  Receipt Date: 20090415
  Transmission Date: 20101027
  Serious: No
  Sender: FDA-Public Use
  Company Number: US-ASTRAZENECA-2009UW05303

PATIENT
  Age: 29355 Day
  Sex: Female
  Weight: 68.9 kg

DRUGS (1)
  1. PRILOSEC [Suspect]
     Indication: OESOPHAGEAL DISORDER
     Route: 048
     Dates: start: 20081025, end: 20090222

REACTIONS (3)
  - CHEST PAIN [None]
  - ERUCTATION [None]
  - OESOPHAGEAL DISORDER [None]
